FAERS Safety Report 4602881-5 (Version None)
Quarter: 2005Q1

REPORT INFORMATION
  Report Type: 
  Country: None (occurrence: None)
  Receive Date: 20050309
  Receipt Date: 20050221
  Transmission Date: 20050727
  Serious: Yes (Hospitalization)
  Sender: FDA-Public Use
  Company Number: ES-GLAXOSMITHKLINE-B0372711A

PATIENT

DRUGS (1)
  1. LITHIUM CARBONATE CAP [Suspect]
     Route: 065

REACTIONS (7)
  - CONVULSION [None]
  - HYPERNATRAEMIA [None]
  - METABOLIC ENCEPHALOPATHY [None]
  - MYOCLONUS [None]
  - RENAL DISORDER [None]
  - STUPOR [None]
  - THINKING ABNORMAL [None]
